FAERS Safety Report 10736468 (Version 1)
Quarter: 2015Q1

REPORT INFORMATION
  Report Type: Spontaneous
  Country: GB (occurrence: None)
  Receive Date: 20150122
  Receipt Date: 20150122
  Transmission Date: 20150721
  Serious: Yes (Death)
  Sender: FDA-Public Use
  Company Number: 2014000064A

PATIENT
  Age: 27 Year
  Sex: Female

DRUGS (6)
  1. OXYCODONE UNK STRENGTH [Suspect]
     Active Substance: OXYCODONE
  2. MORPHINE UNK STRENGTH [Suspect]
     Active Substance: MORPHINE
  3. HYDROCODONE [Concomitant]
     Active Substance: HYDROCODONE
  4. MEPROBAMATE. [Concomitant]
     Active Substance: MEPROBAMATE
  5. CARISOPRODOL. [Concomitant]
     Active Substance: CARISOPRODOL
  6. XANAX [Concomitant]
     Active Substance: ALPRAZOLAM

REACTIONS (3)
  - Overdose [None]
  - Hepatic cirrhosis [None]
  - Toothache [None]

NARRATIVE: CASE EVENT DATE: 20130513
